FAERS Safety Report 20907786 (Version 2)
Quarter: 2022Q2

REPORT INFORMATION
  Report Type: Spontaneous
  Country: PT (occurrence: PT)
  Receive Date: 20220602
  Receipt Date: 20220615
  Transmission Date: 20220721
  Serious: Yes (Other)
  Sender: FDA-Public Use
  Company Number: PT-TEVA-2022-PT-2041178

PATIENT
  Age: 27 Year
  Sex: Female

DRUGS (4)
  1. HALOPERIDOL [Suspect]
     Active Substance: HALOPERIDOL
     Indication: Mania
     Dosage: 15 MILLIGRAM DAILY;
     Route: 030
  2. HALOPERIDOL [Suspect]
     Active Substance: HALOPERIDOL
     Indication: Psychotic symptom
  3. ATOVAQUONE [Suspect]
     Active Substance: ATOVAQUONE
     Indication: Malaria prophylaxis
     Dosage: 250 MILLIGRAM DAILY;
     Route: 065
  4. PROGUANIL [Suspect]
     Active Substance: PROGUANIL
     Indication: Malaria prophylaxis
     Dosage: 100 MILLIGRAM DAILY;

REACTIONS (3)
  - Mania [Recovered/Resolved]
  - Psychotic symptom [Recovered/Resolved]
  - Extrapyramidal disorder [Recovered/Resolved]
